FAERS Safety Report 25863622 (Version 2)
Quarter: 2025Q4

REPORT INFORMATION
  Report Type: Spontaneous
  Country: US (occurrence: US)
  Receive Date: 20250930
  Receipt Date: 20251001
  Transmission Date: 20260117
  Serious: Yes (Other)
  Sender: VERASTEM
  Company Number: US-VERASTEM-250916US-AFCPK-00577

PATIENT

DRUGS (1)
  1. AVMAPKI FAKZYNJA CO-PACK [Suspect]
     Active Substance: AVUTOMETINIB POTASSIUM\DEFACTINIB HYDROCHLORIDE
     Indication: Product used for unknown indication
     Dosage: 1.0 AS ORDERED
     Route: 048

REACTIONS (1)
  - Liver disorder [Unknown]

NARRATIVE: CASE EVENT DATE: 20250902
